FAERS Safety Report 4449146-2 (Version None)
Quarter: 2004Q3

REPORT INFORMATION
  Report Type: 
  Country: None (occurrence: None)
  Receive Date: 20040913
  Receipt Date: 20040826
  Transmission Date: 20050211
  Serious: Yes (Hospitalization)
  Sender: FDA-Public Use
  Company Number: 203662

PATIENT
  Age: 46 Year
  Sex: Male

DRUGS (2)
  1. AVONEX [Suspect]
     Indication: MULTIPLE SCLEROSIS
     Dosage: 30 MCG QW IM
     Route: 030
     Dates: start: 20020330, end: 20031201
  2. AVONEX [Suspect]
     Indication: MULTIPLE SCLEROSIS
     Dosage: 30 MCG QW IM
     Route: 030
     Dates: start: 20031201

REACTIONS (8)
  - ASTHENIA [None]
  - CONDITION AGGRAVATED [None]
  - HYPERGLYCAEMIA [None]
  - MULTIPLE SCLEROSIS [None]
  - PAIN IN EXTREMITY [None]
  - URINARY INCONTINENCE [None]
  - VISION BLURRED [None]
  - VISUAL DISTURBANCE [None]
